FAERS Safety Report 8619225-4 (Version None)
Quarter: 2012Q3

REPORT INFORMATION
  Report Type: 
  Country: None (occurrence: None)
  Receive Date: 20120816
  Receipt Date: 20120816
  Transmission Date: 20120928
  Serious: Yes (Hospitalization)
  Sender: FDA-Public Use
  Company Number: None

PATIENT
  Sex: Male
  Weight: 73.5 kg

DRUGS (5)
  1. DOXORUBICIN HYDROCHLORIDE [Suspect]
     Dosage: 91 MG
  2. RITUXIMAB (MAAB C2B8 ANTI CD20, CHIMERIC) [Suspect]
     Dosage: 700 MG
  3. CYCLOPHOSPHAMIDE [Suspect]
     Dosage: 1370 MG
  4. VINCRISTINE SULFATE [Suspect]
     Dosage: 2 MG
  5. PREDNISONE [Suspect]
     Dosage: 350 MG

REACTIONS (3)
  - PROTEUS INFECTION [None]
  - FEBRILE NEUTROPENIA [None]
  - ESCHERICHIA URINARY TRACT INFECTION [None]
